FAERS Safety Report 13504032 (Version 1)
Quarter: 2017Q2

REPORT INFORMATION
  Report Type: Spontaneous
  Country: US (occurrence: US)
  Receive Date: 20170502
  Receipt Date: 20170502
  Transmission Date: 20170830
  Serious: Yes (Other)
  Sender: FDA-Public Use
  Company Number: None

PATIENT
  Age: 81 Year
  Sex: Female
  Weight: 76.95 kg

DRUGS (1)
  1. METAMUCIL [Suspect]
     Active Substance: PLANTAGO SEED

REACTIONS (8)
  - Skin disorder [None]
  - Acne [None]
  - Dysphonia [None]
  - Productive cough [None]
  - Blister [None]
  - Product label issue [None]
  - Rash [None]
  - Skin burning sensation [None]

NARRATIVE: CASE EVENT DATE: 20160214
